FAERS Safety Report 18092603 (Version 1)
Quarter: 2020Q3

REPORT INFORMATION
  Report Type: Spontaneous
  Country: CZ (occurrence: CZ)
  Receive Date: 20200730
  Receipt Date: 20200730
  Transmission Date: 20201103
  Serious: Yes (Other)
  Sender: FDA-Public Use
  Company Number: CZ-SUN PHARMACEUTICAL INDUSTRIES LTD-2020RR-255824

PATIENT
  Age: 70 Year
  Sex: Male

DRUGS (6)
  1. BEVACIZUMAB. [Suspect]
     Active Substance: BEVACIZUMAB
     Indication: LUNG ADENOCARCINOMA
     Dosage: 600 MILLIGRAM, 7.5 MG/KG BODY WEIGHT
     Route: 042
     Dates: start: 201505
  2. ERLOTINIB [Suspect]
     Active Substance: ERLOTINIB
     Dosage: 100 MILLIGRAM, DAILY
     Route: 065
  3. PACLITAXEL. [Suspect]
     Active Substance: PACLITAXEL
     Indication: LUNG ADENOCARCINOMA
     Dosage: 175 MILLIGRAM/SQ. METER, 330 MG
     Route: 042
     Dates: start: 201505
  4. GEFITINIB. [Suspect]
     Active Substance: GEFITINIB
     Indication: LUNG ADENOCARCINOMA
     Dosage: 250 MILLIGRAM, DAILY
     Route: 065
     Dates: start: 201411
  5. ERLOTINIB [Suspect]
     Active Substance: ERLOTINIB
     Indication: LUNG ADENOCARCINOMA
     Dosage: 150 MILLIGRAM, DAILY
     Route: 065
     Dates: start: 201509
  6. CARBOPLATIN. [Suspect]
     Active Substance: CARBOPLATIN
     Indication: LUNG ADENOCARCINOMA
     Dosage: 425 MILLIGRAM, AUC5
     Route: 042
     Dates: start: 201505

REACTIONS (2)
  - Rash pustular [Recovered/Resolved]
  - Disease progression [Unknown]
